FAERS Safety Report 5191775-5 (Version None)
Quarter: 2006Q4

REPORT INFORMATION
  Report Type: 
  Country: None (occurrence: None)
  Receive Date: 20061220
  Receipt Date: 20061207
  Transmission Date: 20070319
  Serious: Yes (Death, Hospitalization)
  Sender: FDA-Public Use
  Company Number: FRVA20060017

PATIENT
  Age: 45 Year
  Sex: Female

DRUGS (2)
  1. FROVATRIPTAN                                           ENDO [Suspect]
     Indication: DRUG USE FOR UNKNOWN INDICATION
  2. ELETRIPTAN [Suspect]
     Indication: DRUG USE FOR UNKNOWN INDICATION

REACTIONS (6)
  - ABDOMINAL PAIN [None]
  - CARDIAC ARREST [None]
  - COLITIS ISCHAEMIC [None]
  - DISSEMINATED INTRAVASCULAR COAGULATION [None]
  - ELECTROMECHANICAL DISSOCIATION [None]
  - RECTAL HAEMORRHAGE [None]
